FAERS Safety Report 15269522 (Version 1)
Quarter: 2018Q3

REPORT INFORMATION
  Report Type: Spontaneous
  Country: US (occurrence: US)
  Receive Date: 20180813
  Receipt Date: 20180813
  Transmission Date: 20181010
  Serious: Yes (Other)
  Sender: FDA-Public Use
  Company Number: US-BRISTOL-MYERS SQUIBB COMPANY-BMS-2018-073257

PATIENT
  Sex: Female

DRUGS (1)
  1. ELIQUIS [Suspect]
     Active Substance: APIXABAN
     Indication: CEREBROVASCULAR ACCIDENT PROPHYLAXIS
     Dosage: 5 MG, QD
     Route: 065
     Dates: start: 2018

REACTIONS (6)
  - Gastrointestinal haemorrhage [Unknown]
  - Abdominal pain lower [Recovered/Resolved]
  - Inappropriate schedule of drug administration [Unknown]
  - Faeces discoloured [Unknown]
  - Abdominal distension [Unknown]
  - Drug dispensing issue [Unknown]

NARRATIVE: CASE EVENT DATE: 2018
